FAERS Safety Report 25374747 (Version 1)
Quarter: 2025Q2

REPORT INFORMATION
  Report Type: Spontaneous
  Country: US (occurrence: None)
  Receive Date: 20250528
  Receipt Date: 20250528
  Transmission Date: 20250717
  Serious: Yes (Other)
  Sender: FDA-CTU
  Company Number: None

PATIENT
  Age: 72 Year
  Sex: Female

DRUGS (8)
  1. SELADELPAR [Suspect]
     Active Substance: SELADELPAR
     Indication: Primary biliary cholangitis
     Dosage: FREQUENCY : DAILY;?
     Route: 048
     Dates: start: 20250502, end: 20250519
  2. ATORVASTATIN [Concomitant]
     Active Substance: ATORVASTATIN
  3. DOXYCYCLINE [Concomitant]
     Active Substance: DOXYCYCLINE
  4. DULOXETINE [Concomitant]
     Active Substance: DULOXETINE
  5. LEVOTHYROXINE [Concomitant]
     Active Substance: LEVOTHYROXINE
  6. OMEPRAZOLE [Concomitant]
     Active Substance: OMEPRAZOLE
  7. VENLAFAXINE HYDROCHLORIDE [Concomitant]
     Active Substance: VENLAFAXINE HYDROCHLORIDE
  8. GABAPENTIN [Concomitant]
     Active Substance: GABAPENTIN

REACTIONS (4)
  - Dizziness [None]
  - Balance disorder [None]
  - Fall [None]
  - Drug intolerance [None]

NARRATIVE: CASE EVENT DATE: 20250527
